FAERS Safety Report 6201505-3 (Version None)
Quarter: 2009Q2

REPORT INFORMATION
  Report Type: 
  Country: None (occurrence: None)
  Receive Date: 20090526
  Receipt Date: 20090514
  Transmission Date: 20091009
  Serious: No
  Sender: FDA-Public Use
  Company Number: US-B.I. PHARMACEUTICALS,INC./RIDGEFIELD-2009-BP-06063BP

PATIENT
  Sex: Female

DRUGS (2)
  1. SPIRIVA [Suspect]
     Indication: CHRONIC OBSTRUCTIVE PULMONARY DISEASE
     Dosage: 18MCG
     Route: 055
     Dates: start: 20090509
  2. ESTROGENIC SUBSTANCE [Concomitant]
     Indication: MENOPAUSAL SYMPTOMS
     Dosage: .3MG
     Route: 048
     Dates: start: 20040101

REACTIONS (1)
  - PHOTOSENSITIVITY REACTION [None]
